FAERS Safety Report 8179945-5 (Version None)
Quarter: 2012Q1

REPORT INFORMATION
  Report Type: 
  Country: None (occurrence: None)
  Receive Date: 20120302
  Receipt Date: 20120221
  Transmission Date: 20120608
  Serious: Yes (Hospitalization)
  Sender: FDA-Public Use
  Company Number: JP-BRISTOL-MYERS SQUIBB COMPANY-16373417

PATIENT
  Age: 83 Year
  Sex: Male

DRUGS (5)
  1. METHYCOBAL [Suspect]
  2. AMARYL [Suspect]
     Route: 048
  3. METFORMIN HCL [Suspect]
     Indication: DIABETES MELLITUS
     Route: 048
  4. CANDESARTAN CILEXETIL [Suspect]
     Route: 048
  5. KINEDAK [Suspect]
     Route: 048

REACTIONS (1)
  - LOSS OF CONSCIOUSNESS [None]
